FAERS Safety Report 8537703 (Version 2)
Quarter: 2014Q1

REPORT INFORMATION
  Report Type: Spontaneous
  Country: AU (occurrence: None)
  Receive Date: 20120423
  Receipt Date: 20140220
  Transmission Date: 20141002
  Serious: Yes (Other)
  Sender: FDA-Public Use
  Company Number: 2012000083

PATIENT
  Age: 68 Year
  Sex: Female

DRUGS (1)
  1. ACEON [Suspect]
     Indication: PRODUCT USED FOR UNKNOWN INDICATION
     Dosage: 10 MG, QD, ORAL
     Route: 048
     Dates: start: 2006

REACTIONS (2)
  - Chronic lymphocytic leukaemia [None]
  - White blood cell count increased [None]
